FAERS Safety Report 13931601 (Version 4)
Quarter: 2017Q4

REPORT INFORMATION
  Report Type: Report from Study
  Country: US (occurrence: US)
  Receive Date: 20170904
  Receipt Date: 20171107
  Transmission Date: 20180320
  Serious: No
  Sender: FDA-Public Use
  Company Number: US-AMGEN-USASL2017131461

PATIENT
  Age: 54 Year
  Sex: Female

DRUGS (1)
  1. ENBREL [Suspect]
     Active Substance: ETANERCEPT
     Indication: RHEUMATOID ARTHRITIS
     Dosage: 50 MG, QWK
     Route: 065

REACTIONS (7)
  - Pain in extremity [Unknown]
  - Localised infection [Unknown]
  - Drug effect incomplete [Unknown]
  - Neck pain [Unknown]
  - Fungal infection [Unknown]
  - Inflammatory marker increased [Unknown]
  - Injection site pain [Not Recovered/Not Resolved]
